FAERS Safety Report 22659095 (Version 1)
Quarter: 2023Q2

REPORT INFORMATION
  Report Type: Other
  Country: JP (occurrence: JP)
  Receive Date: 20230630
  Receipt Date: 20230630
  Transmission Date: 20230721
  Serious: Yes (Death, Hospitalization)
  Sender: FDA-Public Use
  Company Number: JP-CHUGAI-2023023283

PATIENT
  Age: 7 Decade
  Sex: Female

DRUGS (2)
  1. AVASTIN [Suspect]
     Active Substance: BEVACIZUMAB
     Indication: HER2 negative breast cancer
     Dosage: UNK
     Route: 041
  2. PACLITAXEL [Concomitant]
     Active Substance: PACLITAXEL
     Indication: HER2 negative breast cancer
     Dosage: UNK
     Route: 041

REACTIONS (2)
  - Neuropathy peripheral [Recovering/Resolving]
  - Disease progression [Fatal]
